FAERS Safety Report 23571693 (Version 4)
Quarter: 2024Q4

REPORT INFORMATION
  Report Type: Report from Study
  Country: DE (occurrence: DE)
  Receive Date: 20240227
  Receipt Date: 20241011
  Transmission Date: 20250114
  Serious: Yes (Hospitalization, Other)
  Sender: TEVA
  Company Number: DE-KRKA-DE2023K07524STU

PATIENT
  Age: 76 Year
  Sex: Male
  Weight: 73 kg

DRUGS (30)
  1. LENALIDOMIDE [Suspect]
     Active Substance: LENALIDOMIDE
     Indication: Plasma cell myeloma
     Dosage: 10 MG PER DAY ON CYCLE DAYS 1-21 OF A 28 DAYS LONG CYCLE
     Route: 048
     Dates: start: 20240117, end: 20240403
  2. LENALIDOMIDE [Suspect]
     Active Substance: LENALIDOMIDE
     Indication: Plasma cell myeloma
     Dosage: 20 MG PER DAY ON CYCLE DAYS 1-21 OF A 28 DAYS LONG CYCLE
     Route: 048
     Dates: start: 20230330, end: 202305
  3. LENALIDOMIDE [Suspect]
     Active Substance: LENALIDOMIDE
     Indication: Plasma cell myeloma
     Dosage: 15 MG PER DAY ON CYCLE DAYS 1-21 OF A 21 DAYS LONG CYCLE
     Route: 048
     Dates: start: 202305, end: 20230509
  4. LENALIDOMIDE [Suspect]
     Active Substance: LENALIDOMIDE
     Indication: Plasma cell myeloma
     Dosage: 15 MG PER DAY ON CYCLE DAYS 1-21 OF A 28 DAYS LONG CYCLE
     Route: 048
     Dates: start: 20230717, end: 20240116
  5. LENALIDOMIDE [Suspect]
     Active Substance: LENALIDOMIDE
     Indication: Plasma cell myeloma
     Dosage: 10 MG PER DAY ON CYCLE DAYS 1-21 OF A 28 DAYS LONG CYCLE
     Route: 048
     Dates: start: 20240507
  6. DIMETHINDENE [Concomitant]
     Active Substance: DIMETHINDENE
     Indication: Product used for unknown indication
     Route: 065
  7. CALCIUM CARBONATE\CHOLECALCIFEROL [Concomitant]
     Active Substance: CALCIUM CARBONATE\CHOLECALCIFEROL
     Indication: Product used for unknown indication
     Route: 065
  8. ACETAMINOPHEN [Concomitant]
     Active Substance: ACETAMINOPHEN
     Indication: Product used for unknown indication
     Route: 065
  9. LERCANIDIPINE [Concomitant]
     Active Substance: LERCANIDIPINE
     Indication: Product used for unknown indication
     Route: 065
  10. ELIQUIS [Concomitant]
     Active Substance: APIXABAN
     Indication: Product used for unknown indication
     Route: 065
  11. DIGOXIN [Concomitant]
     Active Substance: DIGOXIN
     Indication: Product used for unknown indication
     Dosage: 0.25 MG, 1X PER DAY
     Route: 048
     Dates: start: 20230622
  12. COTRIM [Concomitant]
     Active Substance: SULFAMETHOXAZOLE\TRIMETHOPRIM
     Indication: Product used for unknown indication
     Route: 065
  13. MONTELUKAST [Concomitant]
     Active Substance: MONTELUKAST
     Indication: Product used for unknown indication
     Route: 065
  14. FRESUBIN [Concomitant]
     Active Substance: AMINO ACIDS\DEXTROSE\ELECTROLYTES NOS\SOYBEAN OIL\VITAMINS
     Indication: Product used for unknown indication
     Dosage: 1 DOSAGE FORM, 2X PER DAY 1-1-0,  ENERGY DRINK STARWBERRY
     Route: 048
     Dates: start: 20230622
  15. MOVICOL [Concomitant]
     Active Substance: POLYETHYLENE GLYCOL 3350\POTASSIUM CHLORIDE\SODIUM BICARBONATE\SODIUM CHLORIDE
     Indication: Product used for unknown indication
     Dosage: 1 DOSAGE FORM, 2X PER DAY 1-0-1; MOVICOL JUNIOR AROMA-FREE
     Route: 048
     Dates: start: 20230623
  16. TORSEMIDE [Suspect]
     Active Substance: TORSEMIDE
     Indication: Product used for unknown indication
     Route: 065
  17. TORSEMIDE [Concomitant]
     Active Substance: TORSEMIDE
     Indication: Product used for unknown indication
     Dosage: 10 MG, 2X PER DAY 1-1-0, TORASEMID HEXAL
     Route: 048
     Dates: start: 20230627
  18. DEXAMETHASONE [Suspect]
     Active Substance: DEXAMETHASONE
     Indication: Plasma cell myeloma
     Dosage: 20 MG, PER DAY ON CYCLE DAYS 1, 2, 8, 9, 15, 16, 22, 23 OF A 28 DAYS LONG CYCLE
     Route: 048
     Dates: start: 20230330, end: 20230726
  19. DEXAMETHASONE [Suspect]
     Active Substance: DEXAMETHASONE
     Indication: Plasma cell myeloma
     Dosage: 20 MG PER DAY ON CYCLE DAYS 1, 2, 8, 15, 22 OF A 28 DAYS LONG CYCLE
     Route: 048
     Dates: start: 20231025
  20. DEXAMETHASONE [Suspect]
     Active Substance: DEXAMETHASONE
     Indication: Plasma cell myeloma
     Dosage: 20 MG PER DAY ON CYCLE DAYS 1, 2, 8, 15, 16, 22 OF A 28 DAYS LONG CYCLE
     Route: 048
     Dates: end: 20231018
  21. Calcium-Sandoz D Osteo [Concomitant]
     Indication: Product used for unknown indication
     Dosage: 500MG/400 I.U., 2X PER DAY 1-0-1, CALCIUM-SANDOZ D OSTEO 500MG/400 I.U.
     Route: 048
     Dates: start: 20230622
  22. DARATUMUMAB [Suspect]
     Active Substance: DARATUMUMAB
     Indication: Plasma cell myeloma
     Dosage: 1822 PER DAY ON DAY 1 OF A 21 DAY LONG CYCLE
     Route: 058
     Dates: start: 20230523
  23. DARATUMUMAB [Suspect]
     Active Substance: DARATUMUMAB
     Indication: Plasma cell myeloma
     Dosage: 1800 PER DAY ON DAY 1 OF A 21 DAY LONG CYCLE
     Route: 065
     Dates: start: 20231025
  24. DARATUMUMAB [Suspect]
     Active Substance: DARATUMUMAB
     Indication: Plasma cell myeloma
     Dosage: 1800 MG PER DAY ON DAY 1 OF A 21 DAY LONG CYCLE
     Route: 058
     Dates: start: 20230330
  25. ALDACTONE [Concomitant]
     Active Substance: SPIRONOLACTONE
     Indication: Product used for unknown indication
     Dosage: 25 MG, 1X PER DAY 1-0-0, ALDACTONE 25
     Route: 048
     Dates: start: 20230623
  26. METOPROLOL [Concomitant]
     Active Substance: METOPROLOL
     Indication: Product used for unknown indication
     Dosage: 50 MG, 2X PER DAY 1.5-0-1.5
     Route: 048
     Dates: start: 20230622
  27. ACYCLOVIR [Concomitant]
     Active Substance: ACYCLOVIR
     Indication: Product used for unknown indication
     Dosage: 400 MG, 2X PER DAY  1-0-1
     Route: 048
     Dates: start: 20230622
  28. ENOXAPARIN SODIUM [Concomitant]
     Active Substance: ENOXAPARIN SODIUM
     Indication: Product used for unknown indication
     Dosage: 40MG 0.4ML
     Route: 058
     Dates: start: 20230623
  29. PANTOPRAZOLE SODIUM [Concomitant]
     Active Substance: PANTOPRAZOLE SODIUM
     Indication: Product used for unknown indication
     Dosage: 40 MG, 1X PER DAY 1-0-0,PANTOPRAZOL HEXAL
     Route: 048
     Dates: start: 20230622
  30. CANDESARTAN [Concomitant]
     Active Substance: CANDESARTAN
     Indication: Product used for unknown indication
     Dosage: 16 MG, 1X PER DAY 1-0-0,CANDESARTAN KRKA
     Route: 048
     Dates: start: 20230622

REACTIONS (14)
  - Neutropenia [Recovering/Resolving]
  - Renal oncocytoma [Recovered/Resolved]
  - Calculus bladder [Recovered/Resolved]
  - Haemoglobin decreased [Recovered/Resolved]
  - Fatigue [Recovered/Resolved]
  - Rash [Recovering/Resolving]
  - Cardiac failure acute [Recovered/Resolved]
  - Vertigo [Recovering/Resolving]
  - Malaise [Recovered/Resolved]
  - Dyspnoea [Recovered/Resolved]
  - Leukopenia [Unknown]
  - Febrile neutropenia [Unknown]
  - Pneumonia [Recovered/Resolved]
  - Condition aggravated [Recovered/Resolved]

NARRATIVE: CASE EVENT DATE: 20230501
